FAERS Safety Report 5197764-9 (Version None)
Quarter: 2006Q4

REPORT INFORMATION
  Report Type: 
  Country: None (occurrence: None)
  Receive Date: 20061228
  Receipt Date: 20061211
  Transmission Date: 20070319
  Serious: Yes (Hospitalization)
  Sender: FDA-Public Use
  Company Number: 234256

PATIENT
  Age: 76 Year
  Sex: Female

DRUGS (8)
  1. AVASTIN [Suspect]
     Indication: COLORECTAL CANCER
     Dosage: 450 MG, Q3W, INTRAVENOUS
     Route: 042
     Dates: start: 20060427
  2. CAPECITABINE (CAPECITABINE) [Suspect]
     Indication: COLORECTAL CANCER
     Dosage: 1700 MG, QD, ORAL
     Route: 048
     Dates: start: 20060427
  3. OXALIPLATIN [Suspect]
     Indication: COLORECTAL CANCER
     Dosage: 160 MG, INTRAVENOUS
     Route: 042
     Dates: start: 20060427
  4. CETUXIMAB (CETUXIMAB) [Suspect]
     Indication: COLORECTAL CANCER
     Dosage: 405 MG, 1/WEEK, INTRAVENOUS
     Route: 042
     Dates: start: 20060427
  5. MOVICOLON (ELECTROLYTES NOS, POLYETHYLENE GLYCOL) [Concomitant]
  6. NEXIUM [Concomitant]
  7. TEMAZEPAM [Concomitant]
  8. ONDANSETRON HCL [Concomitant]

REACTIONS (3)
  - PANCREATITIS [None]
  - PORTAL VEIN THROMBOSIS [None]
  - POST PROCEDURAL COMPLICATION [None]
